FAERS Safety Report 14723572 (Version 3)
Quarter: 2018Q2

REPORT INFORMATION
  Report Type: Spontaneous
  Country: US (occurrence: US)
  Receive Date: 20180405
  Receipt Date: 20180612
  Transmission Date: 20180711
  Serious: Yes (Disabling, Other)
  Sender: FDA-Public Use
  Company Number: US-REGENERON PHARMACEUTICALS, INC.-2018-19997

PATIENT

DRUGS (2)
  1. EYLEA [Suspect]
     Active Substance: AFLIBERCEPT
     Indication: MACULAR DEGENERATION
     Dosage: 2 MG, Q6-7 WEEKS, OS
     Route: 031
     Dates: start: 20130211
  2. EYLEA [Suspect]
     Active Substance: AFLIBERCEPT
     Dosage: 2 MG, Q6-7 WEEKS, OS, LAST PRIOR TO EVENT
     Route: 031
     Dates: start: 20180307, end: 20180307

REACTIONS (4)
  - Retinal vein occlusion [Recovered/Resolved]
  - Anxiety [Recovered/Resolved]
  - Wrong technique in product usage process [Unknown]
  - Blindness unilateral [Not Recovered/Not Resolved]

NARRATIVE: CASE EVENT DATE: 20180307
